FAERS Safety Report 7383679-4 (Version None)
Quarter: 2011Q1

REPORT INFORMATION
  Report Type: 
  Country: None (occurrence: None)
  Receive Date: 20110330
  Receipt Date: 20110325
  Transmission Date: 20110831
  Serious: Yes (Hospitalization)
  Sender: FDA-Public Use
  Company Number: AU-ROCHE-746161

PATIENT
  Sex: Female
  Weight: 80 kg

DRUGS (15)
  1. ACTEMRA [Suspect]
     Dosage: FORM: INFUSION
     Route: 042
     Dates: start: 20091028
  2. LEXAPRO [Concomitant]
     Dosage: DAILY
     Dates: start: 20070101
  3. COVERSYL [Concomitant]
  4. ACTEMRA [Suspect]
     Route: 042
     Dates: start: 20101126
  5. PREDNISONE [Concomitant]
     Dosage: DAILY
     Dates: start: 20070101
  6. ACTEMRA [Suspect]
     Route: 042
     Dates: start: 20100917
  7. ACTEMRA [Suspect]
     Route: 042
     Dates: start: 20101029
  8. DICLOFENAC [Concomitant]
     Dosage: DAILY
     Dates: start: 20070101
  9. DOXYCYCLINE [Concomitant]
     Dosage: DRUG NAME REPORTED AS DOXCYCLINE
  10. LEFLUNOMIDE [Concomitant]
     Dosage: DAILY
     Dates: start: 20070101
  11. ACTEMRA [Suspect]
     Route: 042
     Dates: start: 20110112
  12. LEXAPRO [Concomitant]
     Indication: DEPRESSION
  13. ENDEP [Concomitant]
  14. PREDNISONE [Concomitant]
  15. DICLOFENAC [Concomitant]

REACTIONS (2)
  - HAEMARTHROSIS [None]
  - CONTUSION [None]
